FAERS Safety Report 9191315 (Version 1)
Quarter: 2013Q1

REPORT INFORMATION
  Report Type: Spontaneous
  Country: CO (occurrence: CO)
  Receive Date: 20130326
  Receipt Date: 20130326
  Transmission Date: 20140127
  Serious: Yes (Other)
  Sender: FDA-Public Use
  Company Number: CO-PFIZER INC-2013096211

PATIENT
  Age: 8 Year
  Sex: Female

DRUGS (2)
  1. GENOTROPIN [Suspect]
     Indication: PRECOCIOUS PUBERTY
     Dosage: 1.6 MG, 1X/DAY
     Route: 058
     Dates: start: 201208, end: 20130311
  2. GENOTROPIN [Suspect]
     Dosage: 1.6 MG, 1X/DAY
     Route: 058
     Dates: start: 20130316

REACTIONS (8)
  - Delirium [Not Recovered/Not Resolved]
  - Abdominal pain [Not Recovered/Not Resolved]
  - Dizziness [Not Recovered/Not Resolved]
  - Headache [Not Recovered/Not Resolved]
  - Pyrexia [Not Recovered/Not Resolved]
  - Hyperhidrosis [Not Recovered/Not Resolved]
  - Sleep disorder [Not Recovered/Not Resolved]
  - Off label use [Not Recovered/Not Resolved]
